FAERS Safety Report 7727582-6 (Version None)
Quarter: 2011Q3

REPORT INFORMATION
  Report Type: 
  Country: None (occurrence: None)
  Receive Date: 20110902
  Receipt Date: 20110830
  Transmission Date: 20111222
  Serious: Yes (Other)
  Sender: FDA-Public Use
  Company Number: US-PFIZER INC-2011142073

PATIENT
  Sex: Female

DRUGS (2)
  1. VESICARE [Suspect]
     Dosage: UNK
  2. TOVIAZ [Suspect]
     Dosage: UNK

REACTIONS (2)
  - MEMORY IMPAIRMENT [None]
  - SYSTEMIC LUPUS ERYTHEMATOSUS [None]
